FAERS Safety Report 17441725 (Version 1)
Quarter: 2020Q1

REPORT INFORMATION
  Report Type: Spontaneous
  Country: US (occurrence: US)
  Receive Date: 20200220
  Receipt Date: 20200220
  Transmission Date: 20200409
  Serious: Yes (Other)
  Sender: FDA-Public Use
  Company Number: US-AMGEN-USASP2020025391

PATIENT
  Age: 72 Year
  Sex: Female

DRUGS (3)
  1. METAFOLIN [Concomitant]
     Indication: COAGULOPATHY
     Dosage: UNK
     Dates: start: 20020918
  2. WARFARIN [Concomitant]
     Active Substance: WARFARIN
     Indication: COAGULOPATHY
     Dosage: 6 MILLIGRAM, QD
     Dates: start: 20020918
  3. PROLIA [Suspect]
     Active Substance: DENOSUMAB
     Indication: OSTEOPOROSIS POSTMENOPAUSAL
     Dosage: 60 MILLIGRAM, Q6MO
     Route: 065
     Dates: start: 201903

REACTIONS (3)
  - Arthralgia [Recovering/Resolving]
  - Muscle strain [Unknown]
  - Lumbar vertebral fracture [Unknown]

NARRATIVE: CASE EVENT DATE: 2019
